FAERS Safety Report 15290992 (Version 1)
Quarter: 2018Q3

REPORT INFORMATION
  Report Type: Spontaneous
  Country: FI (occurrence: FI)
  Receive Date: 20180817
  Receipt Date: 20180817
  Transmission Date: 20181010
  Serious: Yes (Other)
  Sender: FDA-Public Use
  Company Number: PHHY2018FI071115

PATIENT
  Age: 9 Year
  Sex: Female

DRUGS (2)
  1. RITUXIMAB. [Suspect]
     Active Substance: RITUXIMAB
     Indication: EPILEPSY
     Route: 065
  2. METHYLPREDNISOLONE. [Suspect]
     Active Substance: METHYLPREDNISOLONE
     Indication: EPILEPSY
     Route: 065

REACTIONS (7)
  - Temporal lobe epilepsy [Unknown]
  - Nausea [Unknown]
  - Dysphagia [Unknown]
  - Product use in unapproved indication [Unknown]
  - Seizure [Unknown]
  - Therapy non-responder [Unknown]
  - Abdominal pain [Unknown]
